FAERS Safety Report 23325078 (Version 4)
Quarter: 2024Q1

REPORT INFORMATION
  Report Type: Spontaneous
  Country: US (occurrence: US)
  Receive Date: 20231221
  Receipt Date: 20240222
  Transmission Date: 20240409
  Serious: Yes (Hospitalization, Other)
  Sender: FDA-Public Use
  Company Number: US-CELLTRION INC.-2023US024458

PATIENT

DRUGS (3)
  1. INFLECTRA [Suspect]
     Active Substance: INFLIXIMAB-DYYB
     Indication: Crohn^s disease
     Dosage: 396 MG, LOADING DOSE; EVERY 2 HOURS AND 10 MINUTES
     Route: 042
     Dates: start: 20231106, end: 20231106
  2. INFLECTRA [Suspect]
     Active Substance: INFLIXIMAB-DYYB
     Dosage: 369 MG (EVERY 2 HOURS X 10 MINUTES)
     Route: 042
     Dates: start: 20231106, end: 20231106
  3. REMICADE [Suspect]
     Active Substance: INFLIXIMAB
     Indication: Crohn^s disease
     Dosage: 5MG/KG IV
     Route: 042
     Dates: start: 20231106, end: 20231106

REACTIONS (5)
  - Skin burning sensation [Recovered/Resolved]
  - Back pain [Recovered/Resolved]
  - Fatigue [Recovered/Resolved]
  - Rash [Recovered/Resolved]
  - Peripheral swelling [Recovered/Resolved]

NARRATIVE: CASE EVENT DATE: 20231101
